FAERS Safety Report 4934726-8 (Version None)
Quarter: 2006Q1

REPORT INFORMATION
  Report Type: 
  Country: None (occurrence: None)
  Receive Date: 20060307
  Receipt Date: 20050426
  Transmission Date: 20060701
  Serious: Yes (Hospitalization, Disabling)
  Sender: FDA-Public Use
  Company Number: US-MERCK-0504USA04901

PATIENT
  Age: 51 Year
  Sex: Male
  Weight: 91 kg

DRUGS (1)
  1. VIOXX [Suspect]
     Indication: ARTHRITIS
     Route: 048
     Dates: start: 20000918, end: 20040312

REACTIONS (7)
  - ARTHRALGIA [None]
  - BACK PAIN [None]
  - CORONARY ARTERY DISEASE [None]
  - DYSPHAGIA [None]
  - DYSPNOEA [None]
  - EAR PAIN [None]
  - MYOCARDIAL INFARCTION [None]
